FAERS Safety Report 8063488-3 (Version None)
Quarter: 2012Q1

REPORT INFORMATION
  Report Type: 
  Country: None (occurrence: None)
  Receive Date: 20120123
  Receipt Date: 20120118
  Transmission Date: 20120608
  Serious: Yes (Disabling)
  Sender: FDA-Public Use
  Company Number: PHHY2012IT005219

PATIENT
  Sex: Male

DRUGS (11)
  1. ZOMETA [Suspect]
     Indication: MULTIPLE MYELOMA
     Dosage: UNK
     Route: 042
     Dates: start: 20080801, end: 20100401
  2. THALIDOMIDE [Concomitant]
  3. ASPIRIN [Concomitant]
  4. RANIBEN [Concomitant]
  5. METOPROLOL TARTRATE [Concomitant]
  6. BORTEZOMIB [Concomitant]
  7. ESKIM [Concomitant]
  8. ZANTIPRES [Concomitant]
  9. CRESTOR [Concomitant]
  10. DEXAMETHASONE TAB [Concomitant]
  11. ENALAPRIL MALEATE [Concomitant]

REACTIONS (2)
  - EXPOSED BONE IN JAW [None]
  - OSTEONECROSIS OF JAW [None]
